FAERS Safety Report 17580739 (Version 2)
Quarter: 2020Q2

REPORT INFORMATION
  Report Type: Spontaneous
  Country: HU (occurrence: HU)
  Receive Date: 20200325
  Receipt Date: 20200401
  Transmission Date: 20200713
  Serious: Yes (Death, Life-Threatening, Hospitalization, Other)
  Sender: FDA-Public Use
  Company Number: HU-PFIZER INC-2020123896

PATIENT
  Age: 37 Year
  Sex: Female

DRUGS (2)
  1. VALPROATE [Suspect]
     Active Substance: VALPROIC ACID
  2. LAMOTRIGINE. [Interacting]
     Active Substance: LAMOTRIGINE

REACTIONS (3)
  - Drug interaction [Unknown]
  - Influenza like illness [Fatal]
  - Toxic epidermal necrolysis [Fatal]

NARRATIVE: CASE EVENT DATE: 201802
